FAERS Safety Report 16310464 (Version 1)
Quarter: 2019Q2

REPORT INFORMATION
  Report Type: Spontaneous
  Country: ES (occurrence: ES)
  Receive Date: 20190514
  Receipt Date: 20190514
  Transmission Date: 20190711
  Serious: Yes (Hospitalization, Other)
  Sender: FDA-Public Use
  Company Number: ES-MYLANLABS-2019M1044807

PATIENT
  Age: 73 Year
  Sex: Female

DRUGS (9)
  1. LORMETAZEPAM [Concomitant]
     Active Substance: LORMETAZEPAM
     Dosage: UNK
  2. TIOTROPIUM BROMIDE [Concomitant]
     Active Substance: TIOTROPIUM BROMIDE
     Dosage: UNK
  3. METFORMIN [Suspect]
     Active Substance: METFORMIN HYDROCHLORIDE
     Indication: TYPE 2 DIABETES MELLITUS
     Dosage: 850 MILLIGRAM, Q8H
  4. BISOPROLOL [Concomitant]
     Active Substance: BISOPROLOL
     Dosage: UNK
  5. DIGOXIN. [Concomitant]
     Active Substance: DIGOXIN
     Dosage: UNK
  6. ACENOCUMAROL [Concomitant]
     Active Substance: ACENOCOUMAROL
     Dosage: UNK
  7. INSULIN GLARGINE [Concomitant]
     Active Substance: INSULIN GLARGINE
     Dosage: UNK
  8. TORASEMIDE [Concomitant]
     Active Substance: TORSEMIDE
     Dosage: UNK
  9. TERBUTALINE [Concomitant]
     Active Substance: TERBUTALINE
     Dosage: UNK

REACTIONS (24)
  - Pleural effusion [Unknown]
  - Aspartate aminotransferase increased [Recovered/Resolved]
  - Polydipsia [Unknown]
  - Liver injury [Recovered/Resolved]
  - Lactate dehydrogenase urine increased [Unknown]
  - Activated partial thromboplastin time prolonged [Recovered/Resolved]
  - Polyuria [Recovered/Resolved]
  - Blood bilirubin increased [Recovered/Resolved]
  - Blood lactic acid increased [Unknown]
  - Lactic acidosis [Unknown]
  - Neutrophilia [Unknown]
  - Vomiting [Recovered/Resolved]
  - Condition aggravated [Recovered/Resolved]
  - Renal failure [Recovered/Resolved]
  - Leukocytosis [Unknown]
  - Hepatotoxicity [Recovered/Resolved]
  - Asthenia [Recovered/Resolved]
  - Abdominal pain upper [Recovered/Resolved]
  - Dehydration [Unknown]
  - Alanine aminotransferase increased [Recovered/Resolved]
  - Decreased appetite [Recovered/Resolved]
  - Dyspnoea [Unknown]
  - Anaemia [Unknown]
  - Hepatic failure [Recovered/Resolved]
